FAERS Safety Report 6358723-3 (Version None)
Quarter: 2009Q3

REPORT INFORMATION
  Report Type: 
  Country: None (occurrence: None)
  Receive Date: 20090916
  Receipt Date: 20090709
  Transmission Date: 20100115
  Serious: No
  Sender: FDA-Public Use
  Company Number: US-ABBOTT-09P-163-0584932-00

PATIENT
  Sex: Female
  Weight: 78.088 kg

DRUGS (12)
  1. TRILIPIX [Suspect]
     Indication: BLOOD TRIGLYCERIDES INCREASED
     Dates: start: 20090702, end: 20090707
  2. LIPITOR [Concomitant]
     Indication: BLOOD CHOLESTEROL INCREASED
     Route: 048
  3. FENTANYL [Concomitant]
     Indication: PAIN
     Dosage: PATCH ONCE EVERY 72 HOURS
     Route: 061
  4. HYDROCODNE [Concomitant]
     Indication: PAIN
     Dosage: 7.5 MG/500 MG 4 TIMES DAILY
     Route: 048
  5. CELEBREX [Concomitant]
     Indication: ANTIINFLAMMATORY THERAPY
     Route: 048
  6. ESTRODIOL [Concomitant]
     Indication: HORMONE REPLACEMENT THERAPY
     Route: 048
  7. LEVOTHYROXINE SODIUM [Concomitant]
     Indication: HYPOTHYROIDISM
     Route: 048
  8. ISOSORBIDE MONO [Concomitant]
     Indication: BLOOD TRIGLYCERIDES
     Route: 048
  9. KLONOPIN [Concomitant]
     Indication: ANXIETY
     Route: 048
  10. EFFEXOR [Concomitant]
     Indication: DEPRESSION
     Route: 048
  11. LEXAPRO [Concomitant]
     Indication: DEPRESSION
     Route: 048
  12. ZETIA [Concomitant]
     Indication: BLOOD CHOLESTEROL INCREASED
     Route: 048

REACTIONS (2)
  - BODY TEMPERATURE INCREASED [None]
  - HYPERHIDROSIS [None]
